FAERS Safety Report 6477406-2 (Version None)
Quarter: 2009Q4

REPORT INFORMATION
  Report Type: 
  Country: None (occurrence: None)
  Receive Date: 20091207
  Receipt Date: 20091116
  Transmission Date: 20100525
  Serious: Yes (Hospitalization)
  Sender: FDA-Public Use
  Company Number: US-SANOFI-AVENTIS-200912384US

PATIENT
  Age: 47 Year
  Sex: Female
  Weight: 81 kg

DRUGS (10)
  1. FEXOFENADINE HYDROCHLORIDE/PSEUDOEPHEDRINE HYDROCHLORIDE [Suspect]
     Dosage: DOSE AS USED: UNK
     Route: 048
  2. FEXOFENADINE HYDROCHLORIDE/PSEUDOEPHEDRINE HYDROCHLORIDE [Suspect]
     Indication: URTICARIA
     Dosage: DOSE AS USED: UNK
     Route: 048
  3. FOLIC ACID [Concomitant]
     Dosage: DOSE AS USED: UNK
  4. ESTRADIOL [Concomitant]
     Indication: HYSTERECTOMY
  5. IMIPRAMINE [Concomitant]
     Indication: ANXIETY
  6. SINGULAIR [Concomitant]
     Indication: ASTHMA
  7. NEXIUM [Concomitant]
  8. NEURONTIN [Concomitant]
     Dosage: 1200 X3
  9. ACETAMINOPHEN W/ PROPOXYPHENE HCL [Concomitant]
     Indication: PAIN
     Dosage: 100-650
  10. ALL OTHER THERAPEUTIC PRODUCTS [Concomitant]

REACTIONS (9)
  - ABDOMINAL DISCOMFORT [None]
  - ABDOMINAL PAIN UPPER [None]
  - ANAEMIA [None]
  - DECREASED APPETITE [None]
  - DIARRHOEA [None]
  - INTESTINAL OBSTRUCTION [None]
  - MEDICATION RESIDUE [None]
  - POUCHITIS [None]
  - WEIGHT DECREASED [None]
